FAERS Safety Report 9888372 (Version 1)
Quarter: 2014Q1

REPORT INFORMATION
  Report Type: Spontaneous
  Country: JP (occurrence: None)
  Receive Date: 20140207
  Receipt Date: 20140207
  Transmission Date: 20141002
  Serious: Yes (Other)
  Sender: FDA-Public Use
  Company Number: JP-013935

PATIENT
  Sex: 0

DRUGS (6)
  1. DEGARELIX [Suspect]
     Indication: PROSTATE CANCER
     Dosage: 80MG 1X/MONTH SUBCUTANEOUS
     Route: 058
     Dates: start: 20131126
  2. DOCETAXEL (DOCETAXEL) [Suspect]
     Indication: PRODUCT USED FOR UNKNOWN INDICATION
  3. CELESTAMINE [Concomitant]
  4. CORTICOSTEROID NOS [Concomitant]
  5. CELESTAMINE [Suspect]
     Indication: PRODUCT USED FOR UNKNOWN INDICATION
     Route: 048
  6. CORTICOSTEROIDS [Suspect]
     Indication: PRODUCT USED FOR UNKNOWN INDICATION

REACTIONS (5)
  - Injection site erythema [None]
  - Decreased appetite [None]
  - Malaise [None]
  - Intentional drug misuse [None]
  - Urticaria [None]
